FAERS Safety Report 15251527 (Version 1)
Quarter: 2018Q3

REPORT INFORMATION
  Report Type: Spontaneous
  Country: US (occurrence: US)
  Receive Date: 20180807
  Receipt Date: 20180807
  Transmission Date: 20181010
  Serious: Yes (Hospitalization)
  Sender: FDA-Public Use
  Company Number: US-NORTHSTAR HEALTHCARE HOLDINGS-US-2018NSR000133

PATIENT
  Age: 39 Year
  Sex: Male

DRUGS (9)
  1. HYDROMORPHONE [Suspect]
     Active Substance: HYDROMORPHONE
     Dosage: 0.100 MG, PRN (6 OPTIONAL DAILY BOLUS DOSES)
     Route: 037
  2. BACLOFEN. [Suspect]
     Active Substance: BACLOFEN
     Indication: BACK PAIN
     Dosage: 447.4 ?G, QD
     Route: 037
     Dates: end: 201701
  3. HYDROMORPHONE [Suspect]
     Active Substance: HYDROMORPHONE
     Dosage: UNK, TITRATED DOWN
     Route: 037
     Dates: end: 201701
  4. BUPIVACAINE. [Suspect]
     Active Substance: BUPIVACAINE
     Dosage: UNK, TITRATED DOWN
     Route: 037
     Dates: end: 201701
  5. BUPIVACAINE. [Suspect]
     Active Substance: BUPIVACAINE
     Indication: BACK PAIN
     Dosage: 3.343 MG, QD
     Route: 037
     Dates: end: 201701
  6. BUPIVACAINE. [Suspect]
     Active Substance: BUPIVACAINE
     Dosage: 0.013 MG, PRN  (6 OPTIONAL DAILY BOLUS DOSES)
     Route: 037
  7. BACLOFEN. [Suspect]
     Active Substance: BACLOFEN
     Dosage: UNK, TITRATED DOWN
     Route: 037
     Dates: end: 201701
  8. HYDROMORPHONE [Suspect]
     Active Substance: HYDROMORPHONE
     Indication: BACK PAIN
     Dosage: 24.506 MG, QD
     Route: 037
     Dates: end: 201701
  9. BACLOFEN. [Suspect]
     Active Substance: BACLOFEN
     Dosage: 1.8 ?G, PRN  (6 OPTIONAL DAILY BOLUS DOSES)
     Route: 037

REACTIONS (1)
  - Arachnoiditis [Unknown]

NARRATIVE: CASE EVENT DATE: 201612
